FAERS Safety Report 10080377 (Version 1)
Quarter: 2014Q2

REPORT INFORMATION
  Report Type: Spontaneous
  Country: US (occurrence: US)
  Receive Date: 20140415
  Receipt Date: 20140415
  Transmission Date: 20141212
  Serious: Yes (Other)
  Sender: FDA-Public Use
  Company Number: US-UCBSA-117584

PATIENT
  Age: 59 Year
  Sex: Female

DRUGS (2)
  1. CIMZIA [Suspect]
     Indication: CROHN^S DISEASE
     Dates: start: 20081109
  2. CIMZIA [Suspect]
     Indication: CROHN^S DISEASE

REACTIONS (2)
  - Cholelithiasis [Recovered/Resolved]
  - Clostridium difficile infection [Recovered/Resolved]
